FAERS Safety Report 8906406 (Version 1)
Quarter: 2012Q4

REPORT INFORMATION
  Report Type: Spontaneous
  Country: US (occurrence: None)
  Receive Date: 20121109
  Receipt Date: 20121109
  Transmission Date: 20130627
  Serious: Yes (Life-Threatening, Hospitalization)
  Sender: FDA-Public Use
  Company Number: None

PATIENT
  Sex: Male
  Weight: 99.79 kg

DRUGS (2)
  1. METOPROLOL [Suspect]
     Indication: AFIB
     Dates: start: 201111, end: 201209
  2. AVODART [Suspect]
     Indication: PROSTATIC DISORDER
     Dates: start: 201209, end: 201209

REACTIONS (2)
  - Drug withdrawal syndrome [None]
  - Heart rate decreased [None]
